FAERS Safety Report 6862732-5 (Version None)
Quarter: 2010Q3

REPORT INFORMATION
  Report Type: 
  Country: None (occurrence: None)
  Receive Date: 20100721
  Receipt Date: 20100707
  Transmission Date: 20110219
  Serious: Yes (Death, Other)
  Sender: FDA-Public Use
  Company Number: JP-SANOFI-AVENTIS-2010SA042154

PATIENT
  Age: 59 Year
  Sex: Male

DRUGS (10)
  1. FLUDARABINE PHOSPHATE [Suspect]
     Route: 048
     Dates: start: 20100308, end: 20100313
  2. ANTITHYMOCYTE IMMUNOGLOBULIN [Suspect]
     Route: 065
     Dates: start: 20100312, end: 20100313
  3. BUSULFAN [Suspect]
     Route: 065
     Dates: start: 20100309, end: 20100311
  4. FLUCONAZOLE [Concomitant]
     Indication: ANTIFUNGAL PROPHYLAXIS
     Dates: start: 20100304, end: 20100524
  5. SULPIRIDE [Concomitant]
     Indication: DEPRESSION
     Dates: start: 20100219, end: 20100401
  6. LANSOPRAZOLE [Concomitant]
     Dates: start: 20100219, end: 20100401
  7. ACYCLOVIR [Concomitant]
     Indication: PROPHYLAXIS
     Dates: start: 20100309, end: 20100401
  8. SULFAMETHOXAZOLE AND TRIMETHOPRIM [Concomitant]
     Indication: PROPHYLAXIS
     Dates: start: 20100305, end: 20100313
  9. TACROLIMUS [Concomitant]
     Indication: PROPHYLAXIS AGAINST GRAFT VERSUS HOST DISEASE
     Dates: start: 20100314, end: 20100602
  10. METHOTREXATE [Concomitant]
     Indication: PROPHYLAXIS AGAINST GRAFT VERSUS HOST DISEASE
     Dates: start: 20100316, end: 20100326

REACTIONS (9)
  - ACUTE RESPIRATORY FAILURE [None]
  - ANAEMIA [None]
  - CYTOMEGALOVIRUS INFECTION [None]
  - DEATH [None]
  - FEBRILE NEUTROPENIA [None]
  - LIVER DISORDER [None]
  - NEUTROPHIL COUNT DECREASED [None]
  - PLATELET COUNT DECREASED [None]
  - PYREXIA [None]
